FAERS Safety Report 9253364 (Version 2)
Quarter: 2013Q2

REPORT INFORMATION
  Report Type: Spontaneous
  Country: US (occurrence: US)
  Receive Date: 20130425
  Receipt Date: 20130530
  Transmission Date: 20140414
  Serious: Yes (Hospitalization, Other)
  Sender: FDA-Public Use
  Company Number: US-009507513-1304USA013846

PATIENT
  Age: 48 Year
  Sex: Male
  Weight: 90.25 kg

DRUGS (6)
  1. JANUVIA [Suspect]
     Indication: TYPE 2 DIABETES MELLITUS
     Dosage: 100 MG, QD
     Route: 048
     Dates: end: 20130403
  2. METFORMIN [Concomitant]
  3. PRAVASTATIN SODIUM [Concomitant]
  4. FENOFIBRATE [Concomitant]
  5. LOSARTAN POTASSIUM TABLETS [Concomitant]
  6. LOVAZA [Concomitant]

REACTIONS (1)
  - Pancreatitis [Recovered/Resolved]
